FAERS Safety Report 26125166 (Version 1)
Quarter: 2025Q4

REPORT INFORMATION
  Report Type: Report from Study
  Country: CA (occurrence: None)
  Receive Date: 20251205
  Receipt Date: 20251205
  Transmission Date: 20260117
  Serious: Yes (Death, Other)
  Sender: UCB
  Company Number: CA-UCBSA-2025076102

PATIENT

DRUGS (1)
  1. BIMEKIZUMAB [Suspect]
     Active Substance: BIMEKIZUMAB
     Indication: Product used for unknown indication
     Dosage: 320 MILLIGRAM, EV 8 WEEKS

REACTIONS (3)
  - Death [Fatal]
  - Multiple organ dysfunction syndrome [Unknown]
  - Infection [Unknown]
